FAERS Safety Report 8916274 (Version 2)
Quarter: 2012Q4

REPORT INFORMATION
  Report Type: 
  Country: NZ (occurrence: NZ)
  Receive Date: 20121120
  Receipt Date: 20121204
  Transmission Date: 20130627
  Serious: Yes (Death, Other)
  Sender: FDA-Public Use
  Company Number: PHHY2012NZ103604

PATIENT
  Age: 72 Year
  Sex: Male

DRUGS (6)
  1. CLOZARIL (CLOZAPINE) [Suspect]
     Indication: SCHIZOPHRENIA
     Dosage: 37.5 mg daily
     Route: 048
     Dates: start: 20121030
  2. CLOZARIL (CLOZAPINE) [Suspect]
     Dosage: 50 mg daily
     Route: 048
     Dates: start: 20121030
  3. ASPIRIN [Concomitant]
     Dosage: 100 mg daily
     Route: 048
  4. AMANTADINE [Concomitant]
     Dosage: 100 mg daily
     Route: 048
  5. ENALAPRIL [Concomitant]
     Dosage: 5 mg daily
     Route: 048
  6. IPRATROPIUM [Concomitant]
     Dosage: II fuffs PRN, BD

REACTIONS (6)
  - Cardiac disorder [Fatal]
  - Respiratory distress [Unknown]
  - Malaise [Unknown]
  - Salivary hypersecretion [Unknown]
  - White blood cell count increased [Unknown]
  - Neutrophil count increased [Unknown]
